FAERS Safety Report 18683245 (Version 1)
Quarter: 2020Q4

REPORT INFORMATION
  Report Type: Spontaneous
  Country: US (occurrence: US)
  Receive Date: 20201230
  Receipt Date: 20201230
  Transmission Date: 20210114
  Serious: Yes (Hospitalization)
  Sender: FDA-Public Use
  Company Number: US-STRIDES ARCOLAB LIMITED-2020SP016549

PATIENT
  Age: 12 Year
  Sex: Female
  Weight: 75 kg

DRUGS (8)
  1. MAGNESIUM CHLORIDE. [Concomitant]
     Active Substance: MAGNESIUM CHLORIDE
     Indication: HYPOPARATHYROIDISM
     Dosage: UNK
     Route: 048
     Dates: start: 201911
  2. HYDROCORTISONE. [Suspect]
     Active Substance: HYDROCORTISONE
     Dosage: 5 MILLIGRAM (HYDROCORTISONE MANUFACTURED BY VENSUN) (BID) AFTERNOON AND NIGHT RESPECTIVELY
     Route: 048
     Dates: start: 202010
  3. CALCIUM CARBONATE. [Concomitant]
     Active Substance: CALCIUM CARBONATE
     Indication: HYPOPARATHYROIDISM
     Dosage: UNK
     Route: 048
     Dates: start: 201608
  4. SYNTHROID [Concomitant]
     Active Substance: LEVOTHYROXINE SODIUM
     Indication: HYPOPARATHYROIDISM
     Dosage: UNK
     Route: 048
     Dates: start: 201608
  5. CALCITRIOL. [Concomitant]
     Active Substance: CALCITRIOL
     Indication: HYPOPARATHYROIDISM
     Dosage: UNK
     Route: 048
     Dates: start: 201608
  6. HYDROCORTISONE. [Suspect]
     Active Substance: HYDROCORTISONE
     Indication: ADDISON^S DISEASE
     Dosage: 10 MILLIGRAM (GREEN STONE) IN MORNING
     Route: 048
  7. HYDROCORTISONE. [Suspect]
     Active Substance: HYDROCORTISONE
     Dosage: DOSE INCREASED
     Route: 065
  8. FLUDROCORTISONE [Concomitant]
     Active Substance: FLUDROCORTISONE
     Indication: ADDISON^S DISEASE
     Dosage: UNK
     Route: 048
     Dates: start: 201905

REACTIONS (3)
  - Adrenocortical insufficiency acute [Not Recovered/Not Resolved]
  - Headache [Not Recovered/Not Resolved]
  - Gastritis [Not Recovered/Not Resolved]

NARRATIVE: CASE EVENT DATE: 202010
